FAERS Safety Report 7516202-1 (Version None)
Quarter: 2011Q2

REPORT INFORMATION
  Report Type: 
  Country: None (occurrence: None)
  Receive Date: 20110601
  Receipt Date: 20110525
  Transmission Date: 20111010
  Serious: Yes (Death, Hospitalization)
  Sender: FDA-Public Use
  Company Number: US-GENZYME-CLOF-1001625

PATIENT
  Age: 23 Year
  Sex: Male

DRUGS (3)
  1. BUSULFAN [Suspect]
     Indication: ACUTE MYELOID LEUKAEMIA
     Dosage: 1715 MG, UNK
     Route: 042
     Dates: start: 20110405, end: 20110410
  2. CLOLAR [Suspect]
     Indication: ACUTE MYELOID LEUKAEMIA
     Dosage: 96 MG, UNK
     Route: 042
     Dates: start: 20110405, end: 20110410
  3. FLUDARA [Suspect]
     Indication: ACUTE MYELOID LEUKAEMIA
     Dosage: 288 MG, UNK
     Route: 042
     Dates: start: 20110405, end: 20110410

REACTIONS (2)
  - PNEUMONIA [None]
  - RESPIRATORY FAILURE [None]
